FAERS Safety Report 10493406 (Version 1)
Quarter: 2014Q4

REPORT INFORMATION
  Report Type: Spontaneous
  Country: US (occurrence: US)
  Receive Date: 20141002
  Receipt Date: 20141002
  Transmission Date: 20150528
  Serious: No
  Sender: FDA-Public Use
  Company Number: US-GLAXOSMITHKLINE-A1083585A

PATIENT
  Age: 85 Year
  Sex: Female

DRUGS (14)
  1. FLOVENT [Suspect]
     Active Substance: FLUTICASONE PROPIONATE
     Indication: ASTHMA
     Dosage: 2PUFF TWICE PER DAY
     Route: 055
     Dates: start: 20140701, end: 20140720
  2. VITAMIN D [Concomitant]
     Active Substance: CHOLECALCIFEROL
  3. VENTOLIN [Concomitant]
     Active Substance: ALBUTEROL SULFATE
  4. GLUCOSAMINE [Concomitant]
     Active Substance: GLUCOSAMINE
  5. VITAMIN C [Concomitant]
     Active Substance: ASCORBIC ACID
  6. CENTRUM MULTIVITAMIN [Concomitant]
  7. MAGNESIUM [Concomitant]
     Active Substance: MAGNESIUM
  8. FISH OIL [Concomitant]
     Active Substance: FISH OIL
  9. BABY ASPIRIN [Concomitant]
     Active Substance: ASPIRIN
  10. OMEPRAZOLE. [Concomitant]
     Active Substance: OMEPRAZOLE
  11. PRAMIPEXOLE [Concomitant]
     Active Substance: PRAMIPEXOLE
  12. TYLENOL [Concomitant]
     Active Substance: ACETAMINOPHEN
  13. ADVAIR HFA [Suspect]
     Active Substance: FLUTICASONE PROPIONATE\SALMETEROL XINAFOATE
     Indication: CHRONIC OBSTRUCTIVE PULMONARY DISEASE
     Dosage: 1PUFF TWICE PER DAY
     Route: 055
     Dates: start: 20140721
  14. CALCIUM [Concomitant]
     Active Substance: CALCIUM

REACTIONS (6)
  - Asthenia [Unknown]
  - Dyspnoea [Not Recovered/Not Resolved]
  - Ill-defined disorder [Unknown]
  - Headache [Unknown]
  - Dysphonia [Unknown]
  - Nausea [Unknown]

NARRATIVE: CASE EVENT DATE: 20140725
